FAERS Safety Report 6289128-1 (Version None)
Quarter: 2009Q3

REPORT INFORMATION
  Report Type: 
  Country: None (occurrence: None)
  Receive Date: 20090728
  Receipt Date: 20090713
  Transmission Date: 20100115
  Serious: No
  Sender: FDA-Public Use
  Company Number: 8048963

PATIENT
  Sex: Female
  Weight: 69.4 kg

DRUGS (4)
  1. VIMPAT [Suspect]
     Indication: CONVULSION
     Dosage: 150 MG 2/D PO; 50 MG 2/D PO
     Route: 048
     Dates: start: 20090626, end: 20090708
  2. VIMPAT [Suspect]
     Indication: CONVULSION
     Dosage: 150 MG 2/D PO; 50 MG 2/D PO
     Route: 048
     Dates: start: 20090611, end: 20090725
  3. KEPPRA [Suspect]
     Indication: CONVULSION
     Dosage: 3000 MG 2/D PO
     Route: 048
  4. TEGRETOL [Concomitant]

REACTIONS (2)
  - PRURITUS [None]
  - RASH [None]
